FAERS Safety Report 13342692 (Version 12)
Quarter: 2021Q4

REPORT INFORMATION
  Report Type: Spontaneous
  Country: US (occurrence: US)
  Receive Date: 20170316
  Receipt Date: 20211028
  Transmission Date: 20220303
  Serious: Yes (Hospitalization, Other)
  Sender: FDA-Public Use
  Company Number: US-PFIZER INC-2017109288

PATIENT
  Age: 74 Year
  Sex: Female
  Weight: 82 kg

DRUGS (3)
  1. LYRICA [Suspect]
     Active Substance: PREGABALIN
     Indication: Back pain
     Dosage: 75 MG, 2X/DAY [TAKES ONE IN THE AM AND ONE AT NIGHT]
     Route: 048
     Dates: start: 2010, end: 2016
  2. LYRICA [Suspect]
     Active Substance: PREGABALIN
     Indication: Arthritis
     Dosage: 75 MG, 3X/DAY
  3. LYRICA [Suspect]
     Active Substance: PREGABALIN
     Indication: Intervertebral disc disorder
     Dosage: UNK

REACTIONS (16)
  - Myocardial infarction [Unknown]
  - Withdrawal syndrome [Unknown]
  - Fall [Recovering/Resolving]
  - Back pain [Recovering/Resolving]
  - Meniscus injury [Recovered/Resolved]
  - Gait disturbance [Unknown]
  - Loss of personal independence in daily activities [Unknown]
  - Pain [Unknown]
  - Stress [Unknown]
  - Bone contusion [Unknown]
  - Insomnia [Unknown]
  - Malaise [Unknown]
  - Joint injury [Unknown]
  - Epistaxis [Unknown]
  - Swelling [Unknown]
  - Inflammation [Unknown]

NARRATIVE: CASE EVENT DATE: 20150201
